FAERS Safety Report 12619154 (Version 1)
Quarter: 2016Q3

REPORT INFORMATION
  Report Type: Report from Study
  Country: US (occurrence: US)
  Receive Date: 20160803
  Receipt Date: 20160803
  Transmission Date: 20161109
  Serious: Yes (Hospitalization, Other)
  Sender: FDA-Public Use
  Company Number: US-ABBVIE-16P-163-1689571-00

PATIENT
  Age: 20 Year
  Sex: Female
  Weight: 65.83 kg

DRUGS (1)
  1. HUMIRA [Suspect]
     Active Substance: ADALIMUMAB
     Indication: COLITIS ULCERATIVE
     Route: 058
     Dates: start: 19940825, end: 201506

REACTIONS (11)
  - Rectal haemorrhage [Recovered/Resolved]
  - Exposure during pregnancy [Unknown]
  - Fall [Recovered/Resolved]
  - Blood potassium decreased [Recovered/Resolved]
  - Foetal death [Unknown]
  - Spinal osteoarthritis [Unknown]
  - Blood magnesium decreased [Recovered/Resolved]
  - Nerve compression [Not Recovered/Not Resolved]
  - Abortion spontaneous [Unknown]
  - Diarrhoea [Recovered/Resolved]
  - Drug effect decreased [Unknown]

NARRATIVE: CASE EVENT DATE: 201412
